FAERS Safety Report 13759476 (Version 2)
Quarter: 2017Q3

REPORT INFORMATION
  Report Type: Spontaneous
  Country: BR (occurrence: BR)
  Receive Date: 20170717
  Receipt Date: 20170721
  Transmission Date: 20171127
  Serious: Yes (Hospitalization, Other)
  Sender: FDA-Public Use
  Company Number: BR-PFIZER INC-2017302344

PATIENT
  Age: 61 Year
  Sex: Female

DRUGS (1)
  1. FRONTAL XR [Suspect]
     Active Substance: ALPRAZOLAM
     Indication: ANXIETY
     Dosage: 2 OR 4 MG DAILY

REACTIONS (5)
  - Asthenia [Not Recovered/Not Resolved]
  - Confusional state [Recovering/Resolving]
  - Dementia [Not Recovered/Not Resolved]
  - Memory impairment [Recovering/Resolving]
  - Pain [Not Recovered/Not Resolved]

NARRATIVE: CASE EVENT DATE: 201706
